FAERS Safety Report 22604439 (Version 1)
Quarter: 2023Q2

REPORT INFORMATION
  Report Type: Spontaneous
  Country: US (occurrence: None)
  Receive Date: 20230614
  Receipt Date: 20230614
  Transmission Date: 20230722
  Serious: Yes (Death)
  Sender: FDA-Public Use
  Company Number: None

PATIENT
  Sex: Male

DRUGS (20)
  1. CAPECITABINE [Suspect]
     Active Substance: CAPECITABINE
     Indication: Metastases to liver
     Dosage: 4T BID PO 14DON7DOFF?
     Route: 048
  2. CAPECITABINE [Suspect]
     Active Substance: CAPECITABINE
     Indication: Cholangiocarcinoma
  3. OXALIPLATIN [Concomitant]
     Active Substance: OXALIPLATIN
  4. ALBUTEROL [Concomitant]
     Active Substance: ALBUTEROL
  5. ATORVASTATIN [Concomitant]
     Active Substance: ATORVASTATIN
  6. CALCIUM CITRATE [Concomitant]
     Active Substance: CALCIUM CITRATE
  7. VITAMIN D [Concomitant]
     Active Substance: VITAMIN D NOS
  8. LOMOTIL [Concomitant]
     Active Substance: ATROPINE SULFATE\DIPHENOXYLATE HYDROCHLORIDE
  9. NEXIUM [Concomitant]
     Active Substance: ESOMEPRAZOLE MAGNESIUM
  10. ZETIA [Concomitant]
     Active Substance: EZETIMIBE
  11. FLUOCINOLONE [Concomitant]
     Active Substance: FLUOCINOLONE
  12. FOLIC ACID [Concomitant]
     Active Substance: FOLIC ACID
  13. FUROSEMIDE [Concomitant]
     Active Substance: FUROSEMIDE
  14. GABAPENTIN [Concomitant]
     Active Substance: GABAPENTIN
  15. LACTOBACILLUS ACIDOPHILUS [Concomitant]
     Active Substance: LACTOBACILLUS ACIDOPHILUS
  16. TRADJENTA [Concomitant]
     Active Substance: LINAGLIPTIN
  17. COZAAR [Concomitant]
     Active Substance: LOSARTAN POTASSIUM
  18. FLOMAX [Concomitant]
     Active Substance: TAMSULOSIN HYDROCHLORIDE
  19. VITAMIN B COMPLEX [Concomitant]
     Active Substance: CYANOCOBALAMIN\DEXPANTHENOL\NIACINAMIDE\PYRIDOXINE HYDROCHLORIDE\RIBOFLAVIN 5^-PHOSPHATE SODIUM\THIA
  20. TYLENOL [Concomitant]
     Active Substance: ACETAMINOPHEN

REACTIONS (1)
  - Death [None]
